FAERS Safety Report 24536010 (Version 3)
Quarter: 2024Q4

REPORT INFORMATION
  Report Type: Spontaneous
  Country: US (occurrence: US)
  Receive Date: 20241022
  Receipt Date: 20241106
  Transmission Date: 20250114
  Serious: Yes (Hospitalization, Other)
  Sender: BRISTOL-MYERS SQUIBB COMPANY
  Company Number: US-BRISTOL-MYERS SQUIBB COMPANY-2024-164887

PATIENT
  Age: 75 Year
  Sex: Male

DRUGS (13)
  1. LENALIDOMIDE [Suspect]
     Active Substance: LENALIDOMIDE
     Indication: Plasma cell myeloma
     Route: 048
     Dates: start: 20240701, end: 20240721
  2. DARATUMUMAB [Concomitant]
     Active Substance: DARATUMUMAB
     Indication: Product used for unknown indication
  3. ALLOPURINOL [Concomitant]
     Active Substance: ALLOPURINOL
     Indication: Gout
  4. ATORVASTATIN [Concomitant]
     Active Substance: ATORVASTATIN
     Indication: Prophylaxis
  5. DEXAMETHASONE [Concomitant]
     Active Substance: DEXAMETHASONE
     Indication: Plasma cell myeloma
  6. DOXAZOSIN [Concomitant]
     Active Substance: DOXAZOSIN\DOXAZOSIN MESYLATE
     Indication: Hypertension
  7. METOPROLOL [Concomitant]
     Active Substance: METOPROLOL
     Indication: Hypertension
  8. PANTOPRAZOLE [Concomitant]
     Active Substance: PANTOPRAZOLE
     Indication: Gastrooesophageal reflux disease
  9. PREGABALIN [Concomitant]
     Active Substance: PREGABALIN
     Indication: Pain
  10. PROBENECID AND COLCHICINE [Concomitant]
     Active Substance: COLCHICINE\PROBENECID
     Indication: Gout
  11. ALBUTEROL [Concomitant]
     Active Substance: ALBUTEROL
     Indication: Asthma
  12. CHOLECALCIFEROL [Concomitant]
     Active Substance: CHOLECALCIFEROL
     Indication: Product used for unknown indication
  13. ONDANSETRON [Concomitant]
     Active Substance: ONDANSETRON
     Indication: Nausea

REACTIONS (3)
  - Febrile neutropenia [Recovered/Resolved]
  - Diarrhoea [Recovered/Resolved]
  - Dehydration [Recovered/Resolved]

NARRATIVE: CASE EVENT DATE: 20240717
